FAERS Safety Report 6076408-8 (Version None)
Quarter: 2009Q1

REPORT INFORMATION
  Report Type: 
  Country: None (occurrence: None)
  Receive Date: 20090209
  Receipt Date: 20090203
  Transmission Date: 20090719
  Serious: No
  Sender: FDA-Public Use
  Company Number: 005552

PATIENT
  Age: 12 Year
  Sex: Male

DRUGS (5)
  1. BUSULFEX [Suspect]
     Indication: STEM CELL TRANSPLANT
     Dosage: 12.8 MG/KG, DAILY DOSE INTRAVENOUS
     Route: 042
  2. CYCLOPHOSPHAMIDE [Concomitant]
  3. ETOPOSIDE [Concomitant]
  4. CYCLOSPORINE [Concomitant]
  5. MYCOPHENOLATE MOFETIL [Concomitant]

REACTIONS (8)
  - ARTHRITIS FUNGAL [None]
  - FEBRILE NEUTROPENIA [None]
  - FUSARIUM INFECTION [None]
  - HYPERSENSITIVITY [None]
  - SKIN LESION [None]
  - STAPHYLOCOCCAL SEPSIS [None]
  - STEM CELL TRANSPLANT [None]
  - TRANSPLANT REJECTION [None]
